FAERS Safety Report 25954405 (Version 1)
Quarter: 2025Q4

REPORT INFORMATION
  Report Type: Spontaneous
  Country: US (occurrence: US)
  Receive Date: 20251023
  Receipt Date: 20251023
  Transmission Date: 20260118
  Serious: No
  Sender: BEIGENE
  Company Number: US-BEIGENE-BGN-2025-017753

PATIENT
  Age: 81 Year

DRUGS (3)
  1. BRUKINSA [Suspect]
     Active Substance: ZANUBRUTINIB
     Indication: Chronic lymphocytic leukaemia
     Dosage: 320 MILLIGRAM, DAILY
  2. BRUKINSA [Suspect]
     Active Substance: ZANUBRUTINIB
     Dosage: 320 MILLIGRAM, DAILY
  3. BUPROPION [Concomitant]
     Active Substance: BUPROPION

REACTIONS (1)
  - Scrotal oedema [Recovered/Resolved]
